FAERS Safety Report 6115452-9 (Version None)
Quarter: 2009Q1

REPORT INFORMATION
  Report Type: 
  Country: None (occurrence: None)
  Receive Date: 20090313
  Receipt Date: 20090306
  Transmission Date: 20090719
  Serious: Yes (Life-Threatening)
  Sender: FDA-Public Use
  Company Number: JP-JNJFOC-20090301019

PATIENT
  Sex: Female
  Weight: 38 kg

DRUGS (12)
  1. TAPENTADOL HYDROCHLORIDE [Suspect]
     Route: 048
  2. TAPENTADOL HYDROCHLORIDE [Suspect]
     Indication: CANCER PAIN
     Route: 048
  3. OXYCONTIN [Concomitant]
     Indication: PAIN
  4. LOXONIN [Concomitant]
  5. HERBAL PREPARATION [Concomitant]
  6. GASMOTIN [Concomitant]
  7. MAGMITT [Concomitant]
  8. ALDACTONE [Concomitant]
  9. LASIX [Concomitant]
  10. NOVAMIN [Concomitant]
  11. SERENACE [Concomitant]
     Indication: DELIRIUM
  12. ZOMETA [Concomitant]
     Indication: DELIRIUM

REACTIONS (2)
  - DELIRIUM [None]
  - HYPERCALCAEMIA [None]
